FAERS Safety Report 9339155 (Version 1)
Quarter: 2013Q2

REPORT INFORMATION
  Report Type: Spontaneous
  Country: GB (occurrence: GB)
  Receive Date: 20130610
  Receipt Date: 20130610
  Transmission Date: 20140414
  Serious: Yes (Hospitalization, Other)
  Sender: FDA-Public Use
  Company Number: GB-PFIZER INC-2013172238

PATIENT
  Age: 56 Year
  Sex: Female
  Weight: 78 kg

DRUGS (3)
  1. AMLODIPINE BESILATE [Suspect]
     Indication: HYPERTENSION
     Dosage: 10 MG, UNK
     Route: 048
     Dates: start: 20130202, end: 20130430
  2. OMEPRAZOLE [Concomitant]
     Dosage: UNK
  3. DOMPERIDONE [Concomitant]
     Dosage: UNK

REACTIONS (4)
  - Palpitations [Recovered/Resolved]
  - Heart rate irregular [Recovered/Resolved]
  - Ventricular extrasystoles [Recovered/Resolved]
  - Activities of daily living impaired [Unknown]
